FAERS Safety Report 14772094 (Version 1)
Quarter: 2018Q2

REPORT INFORMATION
  Report Type: Spontaneous
  Country: JP (occurrence: JP)
  Receive Date: 20180417
  Receipt Date: 20180417
  Transmission Date: 20180711
  Serious: Yes (Hospitalization)
  Sender: FDA-Public Use
  Company Number: JP-BIOGEN-2018BI00554398

PATIENT
  Age: 27 Year
  Sex: Female

DRUGS (2)
  1. DINAGEST [Concomitant]
     Active Substance: DIENOGEST
     Route: 065
  2. AVONEX [Suspect]
     Active Substance: INTERFERON BETA-1A
     Indication: MULTIPLE SCLEROSIS
     Route: 065
     Dates: end: 201804

REACTIONS (1)
  - Multiple sclerosis relapse [Not Recovered/Not Resolved]
